FAERS Safety Report 8439769-8 (Version None)
Quarter: 2012Q2

REPORT INFORMATION
  Report Type: 
  Country: None (occurrence: None)
  Receive Date: 20120323
  Receipt Date: 20110527
  Transmission Date: 20120825
  Serious: Yes (Hospitalization)
  Sender: FDA-Public Use
  Company Number: 163-21880-11060092

PATIENT
  Age: 88 Year
  Sex: Female

DRUGS (11)
  1. KLOR-CON [Concomitant]
  2. NITROGLYCERIN [Concomitant]
  3. FELODIPINE [Concomitant]
  4. METOPROLOL TARTRATE [Concomitant]
  5. LIPITOR [Concomitant]
  6. ASPIRIN [Concomitant]
  7. TORSEMIDE [Concomitant]
  8. DEXAMETHASONE [Concomitant]
  9. ISOSORB MONO (TABLETS) [Concomitant]
  10. REVLIMID [Suspect]
     Indication: MULTIPLE MYELOMA
     Dosage: 10 MG, 1 IN 1 D 5 MG, 1 IN 1 D
     Dates: start: 20110502
  11. MULTIVITAMIN [Concomitant]

REACTIONS (2)
  - FATIGUE [None]
  - DYSPNOEA [None]
